FAERS Safety Report 25578029 (Version 3)
Quarter: 2025Q4

REPORT INFORMATION
  Report Type: Spontaneous
  Country: US (occurrence: US)
  Receive Date: 20250718
  Receipt Date: 20251221
  Transmission Date: 20260118
  Serious: No
  Sender: SANOFI AVENTIS
  Company Number: US-SA-2025SA202933

PATIENT
  Age: 77 Year
  Sex: Female

DRUGS (13)
  1. DUPIXENT [Suspect]
     Active Substance: DUPILUMAB
     Indication: Nasal polyps
     Dosage: 300 MG, QOW
     Route: 058
     Dates: start: 20250506
  2. DUPIXENT [Suspect]
     Active Substance: DUPILUMAB
     Indication: Asthma
  3. CALCIUM\CHOLECALCIFEROL [Concomitant]
     Active Substance: CALCIUM\CHOLECALCIFEROL
  4. ATORVASTATIN [Concomitant]
     Active Substance: ATORVASTATIN
  5. PANTOPRAZOLE SODIUM [Concomitant]
     Active Substance: PANTOPRAZOLE SODIUM
     Dosage: ONE DAILY
  6. HYDROCHLOROTHIAZIDE\VALSARTAN [Concomitant]
     Active Substance: HYDROCHLOROTHIAZIDE\VALSARTAN
     Dosage: ONE TABLET DAILY
  7. HYDRALAZINE [Concomitant]
     Active Substance: HYDRALAZINE HYDROCHLORIDE
     Dosage: ONE TABLET TWICE DAILY
  8. ASPIRIN [Concomitant]
     Active Substance: ASPIRIN
     Route: 048
  9. ALBUTEROL SULFATE [Concomitant]
     Active Substance: ALBUTEROL SULFATE
     Dosage: 1 TO 2 INHALATIONS EVERY 4-6 HOURS AS NEEDED
     Route: 055
  10. MUPIROCIN [Concomitant]
     Active Substance: MUPIROCIN
     Dosage: USE TOPICALLY TWICE A DAY AS NEEDED
     Route: 061
  11. BREYNA [Concomitant]
     Active Substance: BUDESONIDE\FORMOTEROL FUMARATE
     Dosage: 2 INHALATIONS ONCE A DAY, INCREASE TO TWICE A DAY WHEN NEEDED
     Route: 055
  12. ATROVENT HFA [Concomitant]
     Active Substance: IPRATROPIUM BROMIDE
     Dosage: TWO INHALATIONS TWICE A DAY
     Route: 055
  13. LEVOTHYROXINE [Concomitant]
     Active Substance: LEVOTHYROXINE

REACTIONS (7)
  - Cough [Unknown]
  - Nasal congestion [Unknown]
  - Anosmia [Unknown]
  - Rhinorrhoea [Unknown]
  - Nasal obstruction [Unknown]
  - Epistaxis [Unknown]
  - Headache [Not Recovered/Not Resolved]

NARRATIVE: CASE EVENT DATE: 20250101
